FAERS Safety Report 5308601-3 (Version None)
Quarter: 2007Q2

REPORT INFORMATION
  Report Type: 
  Country: None (occurrence: None)
  Receive Date: 20070426
  Receipt Date: 20070420
  Transmission Date: 20071010
  Serious: No
  Sender: FDA-Public Use
  Company Number: US-MERCK-0704USA02502

PATIENT
  Age: 40 Year
  Sex: Female
  Weight: 83 kg

DRUGS (4)
  1. JANUVIA [Suspect]
     Indication: DIABETES MELLITUS
     Route: 048
     Dates: start: 20070201, end: 20070323
  2. HYDROCHLOROTHIAZIDE [Concomitant]
     Route: 065
  3. TOPROL-XL [Concomitant]
     Route: 065
  4. POTASSIUM CHLORIDE [Concomitant]
     Route: 065

REACTIONS (2)
  - ARTHRALGIA [None]
  - MYALGIA [None]
